FAERS Safety Report 6665866-3 (Version None)
Quarter: 2010Q2

REPORT INFORMATION
  Report Type: 
  Country: None (occurrence: None)
  Receive Date: 20100402
  Receipt Date: 20100329
  Transmission Date: 20101027
  Serious: Yes (Death, Hospitalization)
  Sender: FDA-Public Use
  Company Number: ES-ROCHE-684562

PATIENT
  Sex: Male
  Weight: 157 kg

DRUGS (2)
  1. BEVACIZUMAB [Suspect]
     Indication: RENAL CELL CARCINOMA
     Dosage: FREQUENCY: EVERY 2 WEEKS
     Route: 042
     Dates: start: 20091124, end: 20091223
  2. INTERFERON ALFA [Suspect]
     Indication: RENAL CELL CARCINOMA
     Dosage: DOSE: 9 MILLION; FREQUENCY: 3 TIMES PER WEEK
     Route: 058
     Dates: start: 20091124, end: 20091223

REACTIONS (3)
  - ANAL ABSCESS [None]
  - PNEUMONIA [None]
  - SEPTIC SHOCK [None]
